FAERS Safety Report 25318026 (Version 1)
Quarter: 2025Q2

REPORT INFORMATION
  Report Type: Spontaneous
  Country: US (occurrence: US)
  Receive Date: 20250515
  Receipt Date: 20250515
  Transmission Date: 20250717
  Serious: Yes (Life-Threatening, Hospitalization)
  Sender: MYLAN
  Company Number: US-MYLANLABS-2025M1040559

PATIENT
  Age: 28 Year
  Sex: Female

DRUGS (24)
  1. VANCOMYCIN [Suspect]
     Active Substance: VANCOMYCIN
     Indication: Staphylococcal bacteraemia
  2. VANCOMYCIN [Suspect]
     Active Substance: VANCOMYCIN
     Indication: Endocarditis
     Route: 065
  3. VANCOMYCIN [Suspect]
     Active Substance: VANCOMYCIN
     Route: 065
  4. VANCOMYCIN [Suspect]
     Active Substance: VANCOMYCIN
  5. AMIODARONE HYDROCHLORIDE [Suspect]
     Active Substance: AMIODARONE HYDROCHLORIDE
     Indication: Arrhythmic storm
  6. AMIODARONE HYDROCHLORIDE [Suspect]
     Active Substance: AMIODARONE HYDROCHLORIDE
  7. AMIODARONE HYDROCHLORIDE [Suspect]
     Active Substance: AMIODARONE HYDROCHLORIDE
     Route: 042
  8. AMIODARONE HYDROCHLORIDE [Suspect]
     Active Substance: AMIODARONE HYDROCHLORIDE
     Route: 042
  9. AMIODARONE HYDROCHLORIDE [Suspect]
     Active Substance: AMIODARONE HYDROCHLORIDE
  10. AMIODARONE HYDROCHLORIDE [Suspect]
     Active Substance: AMIODARONE HYDROCHLORIDE
  11. AMIODARONE HYDROCHLORIDE [Suspect]
     Active Substance: AMIODARONE HYDROCHLORIDE
     Route: 042
  12. AMIODARONE HYDROCHLORIDE [Suspect]
     Active Substance: AMIODARONE HYDROCHLORIDE
     Route: 042
  13. LIDOCAINE [Suspect]
     Active Substance: LIDOCAINE
     Indication: Arrhythmic storm
  14. LIDOCAINE [Suspect]
     Active Substance: LIDOCAINE
     Route: 042
  15. LIDOCAINE [Suspect]
     Active Substance: LIDOCAINE
     Route: 042
  16. LIDOCAINE [Suspect]
     Active Substance: LIDOCAINE
  17. MEROPENEM [Suspect]
     Active Substance: MEROPENEM
     Indication: Staphylococcal bacteraemia
  18. MEROPENEM [Suspect]
     Active Substance: MEROPENEM
     Indication: Endocarditis
     Route: 065
  19. MEROPENEM [Suspect]
     Active Substance: MEROPENEM
     Route: 065
  20. MEROPENEM [Suspect]
     Active Substance: MEROPENEM
  21. HEPARIN [Concomitant]
     Active Substance: HEPARIN SODIUM
     Indication: Thrombosis prophylaxis
  22. HEPARIN [Concomitant]
     Active Substance: HEPARIN SODIUM
     Route: 065
  23. HEPARIN [Concomitant]
     Active Substance: HEPARIN SODIUM
     Route: 065
  24. HEPARIN [Concomitant]
     Active Substance: HEPARIN SODIUM

REACTIONS (1)
  - Drug ineffective [Unknown]
